FAERS Safety Report 6676209-3 (Version None)
Quarter: 2010Q2

REPORT INFORMATION
  Report Type: 
  Country: None (occurrence: None)
  Receive Date: 20100412
  Receipt Date: 20100401
  Transmission Date: 20101027
  Serious: Yes (Hospitalization)
  Sender: FDA-Public Use
  Company Number: US-JNJFOC-20100401173

PATIENT
  Sex: Female
  Weight: 72.58 kg

DRUGS (5)
  1. DURAGESIC-100 [Suspect]
     Indication: COMPLEX REGIONAL PAIN SYNDROME
     Dosage: 75 UG +75 UG
     Route: 062
  2. LYRICA [Concomitant]
     Indication: COMPLEX REGIONAL PAIN SYNDROME
     Route: 048
  3. CYMBALTA [Concomitant]
     Indication: COMPLEX REGIONAL PAIN SYNDROME
     Dosage: 1 IN PM
     Route: 048
  4. CYMBALTA [Concomitant]
     Dosage: 1 AT AM
     Route: 048
  5. SKELAXIN [Concomitant]
     Indication: MUSCLE SPASMS
     Dosage: 1 AT AM
     Route: 048

REACTIONS (6)
  - BLISTER [None]
  - COMPLEX REGIONAL PAIN SYNDROME [None]
  - DIABETIC FOOT [None]
  - HOSPITALISATION [None]
  - PSEUDOMONAS INFECTION [None]
  - SURGERY [None]
